FAERS Safety Report 7473399-X (Version None)
Quarter: 2011Q2

REPORT INFORMATION
  Report Type: 
  Country: None (occurrence: None)
  Receive Date: 20110511
  Receipt Date: 20090824
  Transmission Date: 20111010
  Serious: Yes (Other)
  Sender: FDA-Public Use
  Company Number: PHHY2009ZA67096

PATIENT
  Sex: Male

DRUGS (7)
  1. HYDROXYUREA [Concomitant]
     Dosage: 3 G, DAILY
     Dates: start: 20080827
  2. BOSUTINIB [Suspect]
     Dosage: 500 MG, DAILY
     Dates: start: 20070926, end: 20080827
  3. LEVOTHYROXINE SODIUM [Concomitant]
     Dosage: 150 MG, DAILY
  4. GLEEVEC [Suspect]
     Dosage: 200 MG, DAILY
     Route: 048
     Dates: start: 20050801
  5. GLEEVEC [Suspect]
     Dosage: 400 MG, DAILY
     Route: 048
     Dates: end: 20070801
  6. GLEEVEC [Suspect]
     Indication: CHRONIC MYELOID LEUKAEMIA
     Dosage: 400 MG, DAILY
     Route: 048
     Dates: start: 20041012
  7. HYDROXYUREA [Concomitant]
     Dates: start: 20040201

REACTIONS (7)
  - BLOOD LACTATE DEHYDROGENASE INCREASED [None]
  - HAEMOGLOBIN DECREASED [None]
  - PROTHROMBIN TIME PROLONGED [None]
  - GASTRITIS [None]
  - DRUG INEFFECTIVE [None]
  - BLOOD URIC ACID INCREASED [None]
  - BLOOD CREATININE INCREASED [None]
